FAERS Safety Report 9856392 (Version 1)
Quarter: 2014Q1

REPORT INFORMATION
  Report Type: Spontaneous
  Country: BR (occurrence: BR)
  Receive Date: 20140130
  Receipt Date: 20140130
  Transmission Date: 20141002
  Serious: Yes (Death, Hospitalization)
  Sender: FDA-Public Use
  Company Number: BR-B.I. PHARMACEUTICALS,INC./RIDGEFIELD-2014-BI-04092BR

PATIENT
  Age: 72 Year
  Sex: Female
  Weight: 60 kg

DRUGS (3)
  1. TRAYENTA [Suspect]
     Indication: DIABETES MELLITUS
     Dosage: 10 MG
     Route: 048
     Dates: start: 20121122, end: 20131231
  2. SINVASTATINA [Concomitant]
     Indication: BLOOD CHOLESTEROL INCREASED
     Route: 048
     Dates: start: 20130521
  3. METFORMINA [Concomitant]
     Indication: DIABETES MELLITUS
     Route: 048
     Dates: start: 20130521

REACTIONS (3)
  - Cardio-respiratory arrest [Fatal]
  - Chest discomfort [Not Recovered/Not Resolved]
  - Asthenia [Not Recovered/Not Resolved]
